FAERS Safety Report 7248751-8 (Version None)
Quarter: 2011Q1

REPORT INFORMATION
  Report Type: 
  Country: None (occurrence: None)
  Receive Date: 20110128
  Receipt Date: 20110119
  Transmission Date: 20110831
  Serious: Yes (Hospitalization, Other)
  Sender: FDA-Public Use
  Company Number: US-BAYER-201040636NA

PATIENT
  Sex: Female

DRUGS (18)
  1. PINDOL [Concomitant]
  2. BETASERON [Suspect]
     Dosage: 8 MIU, QOD
     Dates: start: 20101029
  3. AMANTADINE HCL [Concomitant]
  4. ESTRADIOL [Concomitant]
  5. BETASERON [Suspect]
     Indication: MULTIPLE SCLEROSIS
     Dosage: UNK UNK, QOD
     Route: 058
     Dates: start: 19990226, end: 20100201
  6. MICARDIS [Concomitant]
  7. LEVOTHYROXINE SODIUM [Concomitant]
  8. VITAMIN B-12 [Concomitant]
  9. FISH OIL [Concomitant]
  10. CALCIUM [Concomitant]
  11. SINGULAIR [Concomitant]
  12. NEXIUM [Concomitant]
  13. CELEBREX [Concomitant]
  14. PRISTIQ [Concomitant]
  15. MULTI-VITAMINS [Concomitant]
  16. BETASERON [Suspect]
     Dosage: BETAJECT
     Route: 058
     Dates: start: 20010401, end: 20010601
  17. VALIUM [Concomitant]
  18. GABAPENTIN [Concomitant]

REACTIONS (11)
  - LIMB DISCOMFORT [None]
  - ASTHENIA [None]
  - INSOMNIA [None]
  - FALL [None]
  - FEMUR FRACTURE [None]
  - CHEST PAIN [None]
  - LOSS OF CONSCIOUSNESS [None]
  - PAIN [None]
  - NAUSEA [None]
  - MUSCULAR WEAKNESS [None]
  - DIZZINESS [None]
